FAERS Safety Report 5657303-2 (Version None)
Quarter: 2008Q1

REPORT INFORMATION
  Report Type: 
  Country: None (occurrence: None)
  Receive Date: 20080310
  Receipt Date: 20080227
  Transmission Date: 20080703
  Serious: Yes (Other)
  Sender: FDA-Public Use
  Company Number: US-PFIZER INC-2008018959

PATIENT
  Sex: Female
  Weight: 87.272 kg

DRUGS (3)
  1. LYRICA [Suspect]
     Indication: HYPOAESTHESIA
  2. LYRICA [Suspect]
  3. LYRICA [Suspect]
     Indication: BURNING SENSATION

REACTIONS (4)
  - DIARRHOEA [None]
  - DIZZINESS [None]
  - ERUCTATION [None]
  - RASH [None]
